FAERS Safety Report 6275509-9 (Version None)
Quarter: 2009Q3

REPORT INFORMATION
  Report Type: 
  Country: None (occurrence: None)
  Receive Date: 20090721
  Receipt Date: 20090708
  Transmission Date: 20100115
  Serious: Yes (Hospitalization)
  Sender: FDA-Public Use
  Company Number: BE-PFIZER INC-2009237967

PATIENT

DRUGS (1)
  1. CHAMPIX [Suspect]
     Route: 048

REACTIONS (1)
  - MENTAL DISORDER [None]
